FAERS Safety Report 8972839 (Version 4)
Quarter: 2013Q1

REPORT INFORMATION
  Report Type: Spontaneous
  Country: US (occurrence: None)
  Receive Date: 20121210
  Receipt Date: 20130110
  Transmission Date: 20140127
  Serious: Yes (Other)
  Sender: FDA-Public Use
  Company Number: ZYD-12-AE-247

PATIENT
  Sex: Male

DRUGS (2)
  1. LAMOTRIGINE 150MG TABLETS (ZYDUS) [Suspect]
     Indication: GRAND MAL CONVULSION
     Route: 048
     Dates: start: 201111, end: 201205
  2. LAMOTRIGINE 200 MG TABLETS [Suspect]
     Route: 048
     Dates: start: 201205

REACTIONS (2)
  - Grand mal convulsion [None]
  - Product substitution issue [None]
